FAERS Safety Report 6426834-X (Version None)
Quarter: 2009Q4

REPORT INFORMATION
  Report Type: 
  Country: None (occurrence: None)
  Receive Date: 20091103
  Receipt Date: 20091103
  Transmission Date: 20100525
  Serious: No
  Sender: FDA-Public Use
  Company Number: None

PATIENT
  Age: 87 Year
  Sex: Male

DRUGS (1)
  1. FONDAPARINUX [Suspect]
     Indication: DEEP VEIN THROMBOSIS
     Dosage: 7.5 MG EVERYDAY SQ
     Route: 058
     Dates: start: 20090415, end: 20090418

REACTIONS (1)
  - THROMBOCYTOPENIA [None]
